FAERS Safety Report 12210100 (Version 3)
Quarter: 2016Q2

REPORT INFORMATION
  Report Type: Report from Study
  Country: DE (occurrence: DE)
  Receive Date: 20160325
  Receipt Date: 20160420
  Transmission Date: 20160815
  Serious: Yes (Death, Hospitalization, Other)
  Sender: FDA-Public Use
  Company Number: PHHY2016DE038948

PATIENT
  Age: 75 Year
  Sex: Male
  Weight: 66 kg

DRUGS (3)
  1. VIDAZA [Concomitant]
     Active Substance: AZACITIDINE
     Indication: MYELODYSPLASTIC SYNDROME
     Dosage: 130 MG, QD
     Route: 042
     Dates: start: 20151112, end: 20151217
  2. EXJADE [Suspect]
     Active Substance: DEFERASIROX
     Indication: MYELODYSPLASTIC SYNDROME
     Dosage: 500 MG, UNK
     Route: 048
     Dates: start: 20150507, end: 20150624
  3. EXJADE [Suspect]
     Active Substance: DEFERASIROX
     Indication: IRON OVERLOAD
     Dosage: 1000 MG, UNK
     Route: 048
     Dates: start: 20150625, end: 20151221

REACTIONS (4)
  - General physical health deterioration [Unknown]
  - Circulatory collapse [Unknown]
  - Pyrexia [Fatal]
  - Pancytopenia [Unknown]

NARRATIVE: CASE EVENT DATE: 20151221
